FAERS Safety Report 17816917 (Version 1)
Quarter: 2020Q2

REPORT INFORMATION
  Report Type: Spontaneous
  Country: US (occurrence: US)
  Receive Date: 20200522
  Receipt Date: 20200522
  Transmission Date: 20200714
  Serious: No
  Sender: FDA-Public Use
  Company Number: US-FDC LIMITED-2019RIS00558

PATIENT
  Age: 84 Year
  Sex: Female
  Weight: 65.76 kg

DRUGS (1)
  1. TIMOLOL MALEATE. [Suspect]
     Active Substance: TIMOLOL MALEATE
     Indication: MACULAR DEGENERATION
     Dosage: ^DAILY USE^
     Dates: start: 2019

REACTIONS (2)
  - Body height decreased [Not Recovered/Not Resolved]
  - Exposure via skin contact [Recovered/Resolved]

NARRATIVE: CASE EVENT DATE: 201907
